FAERS Safety Report 6549565-4 (Version None)
Quarter: 2010Q2

REPORT INFORMATION
  Report Type: 
  Country: None (occurrence: None)
  Receive Date: 20100119
  Receipt Date: 20100105
  Transmission Date: 20101027
  Serious: Yes (Hospitalization)
  Sender: FDA-Public Use
  Company Number: MOZO-1000230

PATIENT
  Sex: Male
  Weight: 65 kg

DRUGS (2)
  1. PLERIXAFOR (PLERIXAFOR) SOLUTION FOR INJECTION [Suspect]
     Indication: HAEMATOPOIETIC STEM CELL MOBILISATION
     Dosage: 0.78 ML, SUBCUTANEOUS
     Route: 058
     Dates: start: 20090703, end: 20090703
  2. ACETAMINOPHEN [Concomitant]

REACTIONS (3)
  - DIARRHOEA [None]
  - DYSPNOEA [None]
  - TACHYCARDIA [None]
